FAERS Safety Report 14180497 (Version 1)
Quarter: 2017Q4

REPORT INFORMATION
  Report Type: Spontaneous
  Country: RS (occurrence: RS)
  Receive Date: 20171111
  Receipt Date: 20171111
  Transmission Date: 20180321
  Serious: Yes (Other)
  Sender: FDA-Public Use
  Company Number: RS-TEVA-823375ISR

PATIENT
  Age: 66 Year
  Sex: Female

DRUGS (4)
  1. SINOXAL [Suspect]
     Active Substance: OXALIPLATIN
     Indication: COLON CANCER METASTATIC
     Dosage: 100 MG/20 ML
     Route: 041
     Dates: start: 20171010, end: 20171010
  2. SINOXAL [Suspect]
     Active Substance: OXALIPLATIN
     Dosage: 50 MG/10 ML
     Route: 041
     Dates: start: 20171010, end: 20171010
  3. RANITIDIN [Concomitant]
     Active Substance: RANITIDINE HYDROCHLORIDE
     Indication: PRODUCT USED FOR UNKNOWN INDICATION
     Dosage: 50 MILLIGRAM DAILY; 50 MG/20 ML
     Route: 040
     Dates: start: 20171010, end: 20171010
  4. DEXASON [Concomitant]
     Active Substance: DEXAMETHASONE
     Indication: PRODUCT USED FOR UNKNOWN INDICATION
     Dosage: 12 MILLIGRAM DAILY;
     Route: 040
     Dates: start: 20171010, end: 20171010

REACTIONS (11)
  - Altered state of consciousness [Recovering/Resolving]
  - Urticaria [Recovering/Resolving]
  - Nausea [Recovering/Resolving]
  - Erythema [Recovering/Resolving]
  - Conjunctival hyperaemia [Recovering/Resolving]
  - Blood pressure increased [Unknown]
  - Vomiting [Recovered/Resolved]
  - Tachycardia [Unknown]
  - Communication disorder [Recovering/Resolving]
  - Dyspnoea [Recovering/Resolving]
  - Feeling hot [Recovering/Resolving]

NARRATIVE: CASE EVENT DATE: 20171010
